FAERS Safety Report 5750317-3 (Version None)
Quarter: 2008Q2

REPORT INFORMATION
  Report Type: 
  Country: None (occurrence: None)
  Receive Date: 20080521
  Receipt Date: 20080521
  Transmission Date: 20081010
  Serious: Yes (Hospitalization)
  Sender: FDA-Public Use
  Company Number: None

PATIENT
  Age: 62 Year
  Sex: Male
  Weight: 91.6266 kg

DRUGS (1)
  1. LIPITOR [Suspect]

REACTIONS (7)
  - HYPERSOMNIA [None]
  - MAJOR DEPRESSION [None]
  - MENTAL DISORDER [None]
  - MUSCULAR WEAKNESS [None]
  - PERSONALITY CHANGE [None]
  - PSYCHOTIC DISORDER [None]
  - SLEEP DISORDER [None]
